FAERS Safety Report 7958726-9 (Version None)
Quarter: 2011Q4

REPORT INFORMATION
  Report Type: 
  Country: None (occurrence: None)
  Receive Date: 20111206
  Receipt Date: 20111130
  Transmission Date: 20120403
  Serious: Yes (Hospitalization, Other)
  Sender: FDA-Public Use
  Company Number: US-AMGEN-USASP2011061299

PATIENT
  Age: 35 Year
  Sex: Female

DRUGS (1)
  1. ENBREL [Suspect]
     Indication: RHEUMATOID ARTHRITIS
     Dosage: 50 MG, QWK
     Route: 058
     Dates: start: 20110301, end: 20111001

REACTIONS (9)
  - PAIN IN EXTREMITY [None]
  - HYPERTENSION [None]
  - GESTATIONAL DIABETES [None]
  - OEDEMA PERIPHERAL [None]
  - HEADACHE [None]
  - CAESAREAN SECTION [None]
  - ARTHRALGIA [None]
  - NASOPHARYNGITIS [None]
  - PRE-ECLAMPSIA [None]
